FAERS Safety Report 13355076 (Version 1)
Quarter: 2017Q1

REPORT INFORMATION
  Report Type: Not Available
  Country: None (occurrence: US)
  Receive Date: 20170321
  Receipt Date: 20170321
  Transmission Date: 20170429
  Serious: Yes (Other)
  Sender: FDA-Public Use
  Company Number: UK-AKORN-53118

PATIENT
  Sex: Female

DRUGS (1)
  1. ZIOPTAN [Suspect]
     Active Substance: TAFLUPROST

REACTIONS (4)
  - Product quality issue [Not Recovered/Not Resolved]
  - Macular oedema [Not Recovered/Not Resolved]
  - Visual impairment [Unknown]
  - Retinal vascular disorder [Not Recovered/Not Resolved]
